FAERS Safety Report 7270182-5 (Version None)
Quarter: 2011Q1

REPORT INFORMATION
  Report Type: 
  Country: None (occurrence: None)
  Receive Date: 20110202
  Receipt Date: 20110120
  Transmission Date: 20110831
  Serious: Yes (Other)
  Sender: FDA-Public Use
  Company Number: US-ELI_LILLY_AND_COMPANY-US201101005696

PATIENT
  Sex: Female

DRUGS (13)
  1. MICARDIS [Concomitant]
     Dosage: 80 MG, UNK
  2. FUROSEMIDE [Concomitant]
     Dosage: 20 MG, EACH MORNING
  3. PANTOPRAZOLE SODIUM [Concomitant]
     Dosage: 40 MG, EACH EVENING
  4. CYMBALTA [Suspect]
     Dosage: 60 MG, DAILY (1/D)
  5. CYMBALTA [Suspect]
     Dosage: 90 MG, DAILY (1/D)
  6. FLOVENT HFA [Concomitant]
     Dosage: 440 UG, 2/D
  7. CYMBALTA [Suspect]
     Dosage: 30 MG, DAILY (1/D)
  8. CYMBALTA [Suspect]
     Dosage: 20 MG, EACH EVENING
  9. FLUTICASONE PROPIONATE [Concomitant]
     Dosage: 50 UG, 2/D
  10. LORTADINE [Concomitant]
     Dosage: 10 MG, UNK
  11. CYMBALTA [Suspect]
     Indication: FIBROMYALGIA
     Dosage: UNK, UNKNOWN
  12. SINGULAIR [Concomitant]
     Dosage: 10 MG, EACH MORNING
  13. POTASSIUM CHLORIDE [Concomitant]
     Dosage: 20 MEQ, UNK

REACTIONS (9)
  - CONTUSION [None]
  - IMPAIRED HEALING [None]
  - WITHDRAWAL SYNDROME [None]
  - POST PROCEDURAL HAEMORRHAGE [None]
  - PLATELET DISORDER [None]
  - PAIN [None]
  - TENDERNESS [None]
  - HERNIA REPAIR [None]
  - FEELING ABNORMAL [None]
